FAERS Safety Report 5114509-9 (Version None)
Quarter: 2006Q3

REPORT INFORMATION
  Report Type: 
  Country: None (occurrence: None)
  Receive Date: 20060926
  Receipt Date: 20060915
  Transmission Date: 20061208
  Serious: Yes (Hospitalization)
  Sender: FDA-Public Use
  Company Number: US-JNJFOC-20060904305

PATIENT
  Sex: Female
  Weight: 104.33 kg

DRUGS (6)
  1. TOPAMAX [Suspect]
     Dosage: BEDTIME
     Route: 048
  2. TOPAMAX [Suspect]
     Dosage: BEDTIME
     Route: 048
  3. TOPAMAX [Suspect]
     Indication: WEIGHT DECREASED
     Dosage: AT BEDTIME, ^2 OR 3 TABS^
     Route: 048
  4. ALPRAZOLAM [Concomitant]
     Indication: NERVOUSNESS
  5. NEURONTIN [Concomitant]
     Indication: MULTIPLE SCLEROSIS
  6. BENICAR [Concomitant]
     Indication: HYPERTENSION

REACTIONS (9)
  - ABASIA [None]
  - ANOREXIA [None]
  - ANXIETY [None]
  - ASTHENIA [None]
  - CHEST PAIN [None]
  - HYPERTENSION [None]
  - NERVOUSNESS [None]
  - PALPITATIONS [None]
  - SYNCOPE [None]
